FAERS Safety Report 9230838 (Version 1)
Quarter: 2013Q2

REPORT INFORMATION
  Report Type: Spontaneous
  Country: AU (occurrence: AU)
  Receive Date: 20130415
  Receipt Date: 20130415
  Transmission Date: 20140414
  Serious: Yes (Hospitalization)
  Sender: FDA-Public Use
  Company Number: PHHY2013AU035745

PATIENT
  Age: 87 Year
  Sex: Male

DRUGS (5)
  1. ACLASTA [Suspect]
     Dosage: 5 MG, UNK
     Route: 042
  2. ACLASTA [Suspect]
     Dosage: 5 MG, UNK
     Route: 042
     Dates: start: 20130327
  3. ZOMETA [Suspect]
  4. COSUDEX [Concomitant]
     Indication: PROSTATE CANCER
  5. LUCRIN [Concomitant]
     Indication: PROSTATE CANCER

REACTIONS (4)
  - Post procedural pulmonary embolism [Recovered/Resolved]
  - Myocardial ischaemia [Unknown]
  - Coronary artery stenosis [Unknown]
  - Chest pain [Unknown]
